FAERS Safety Report 6737980-5 (Version None)
Quarter: 2010Q2

REPORT INFORMATION
  Report Type: 
  Country: None (occurrence: None)
  Receive Date: 20100520
  Receipt Date: 20100507
  Transmission Date: 20101027
  Serious: Yes (Disabling)
  Sender: FDA-Public Use
  Company Number: 1-22351195

PATIENT
  Sex: Female
  Weight: 86.1834 kg

DRUGS (8)
  1. HYOSCYAMINE SULFATE CR 0.375 MG [Suspect]
     Indication: DIVERTICULUM
     Dosage: 0.375 MG, DAILY, ORAL
     Route: 048
     Dates: start: 20100101, end: 20100315
  2. NASONEX [Concomitant]
  3. PREMARIN [Concomitant]
  4. NITROFURANTOIN [Concomitant]
  5. TYLENOL PM [Concomitant]
  6. OMEPRAZOLE [Concomitant]
  7. FEXOFENADINE [Concomitant]
  8. MICARDIS [Concomitant]

REACTIONS (6)
  - BACK PAIN [None]
  - CONSTIPATION [None]
  - FAECES HARD [None]
  - GAIT DISTURBANCE [None]
  - INTERVERTEBRAL DISC PROTRUSION [None]
  - MEMORY IMPAIRMENT [None]
